FAERS Safety Report 8349182-X (Version None)
Quarter: 2012Q2

REPORT INFORMATION
  Report Type: 
  Country: None (occurrence: None)
  Receive Date: 20120510
  Receipt Date: 20120430
  Transmission Date: 20120825
  Serious: Yes (Hospitalization)
  Sender: FDA-Public Use
  Company Number: US-BRISTOL-MYERS SQUIBB COMPANY-16563397

PATIENT
  Age: 75 Year
  Sex: Male
  Weight: 58 kg

DRUGS (9)
  1. METFORMIN HCL [Suspect]
     Dates: start: 20120307
  2. LOVASTATIN [Concomitant]
     Dates: start: 20080101
  3. DECADRON [Suspect]
     Indication: PREMEDICATION
     Route: 042
     Dates: start: 20120208
  4. MEGACE [Suspect]
     Indication: DECREASED APPETITE
     Route: 048
     Dates: start: 20120412
  5. INSULIN [Concomitant]
     Dates: start: 20120411
  6. KYTRIL [Concomitant]
     Dates: start: 20120208
  7. ASPIRIN [Concomitant]
     Dates: start: 20080101
  8. CENTRUM [Concomitant]
  9. VITAMIN B-12 [Concomitant]
     Dates: start: 20080101

REACTIONS (5)
  - BLOOD GLUCOSE INCREASED [None]
  - INFECTION [None]
  - NAUSEA [None]
  - DEHYDRATION [None]
  - VOMITING [None]
